FAERS Safety Report 7193655-2 (Version None)
Quarter: 2010Q4

REPORT INFORMATION
  Report Type: 
  Country: None (occurrence: None)
  Receive Date: 20101124
  Receipt Date: 20100915
  Transmission Date: 20110411
  Serious: No
  Sender: FDA-Public Use
  Company Number: 018852

PATIENT
  Sex: Male
  Weight: 59 kg

DRUGS (1)
  1. LACOSAMIDE [Suspect]
     Indication: CONVULSION
     Dosage: (75 MG ORAL)
     Route: 048
     Dates: start: 20100401

REACTIONS (1)
  - ACNE [None]
